FAERS Safety Report 10304254 (Version 1)
Quarter: 2014Q3

REPORT INFORMATION
  Report Type: Spontaneous
  Country: US (occurrence: US)
  Receive Date: 20140714
  Receipt Date: 20140714
  Transmission Date: 20150326
  Serious: No
  Sender: FDA-Public Use
  Company Number: US-GILEAD-2014-0107978

PATIENT
  Sex: Female

DRUGS (2)
  1. SOVALDI [Suspect]
     Active Substance: SOFOSBUVIR
     Indication: PRODUCT USED FOR UNKNOWN INDICATION
     Route: 065
  2. RIBAVIRIN. [Concomitant]
     Active Substance: RIBAVIRIN

REACTIONS (2)
  - Fluid retention [Unknown]
  - Urine output decreased [Unknown]
